FAERS Safety Report 5215300-5 (Version None)
Quarter: 2007Q1

REPORT INFORMATION
  Report Type: 
  Country: None (occurrence: None)
  Receive Date: 20070116
  Receipt Date: 20070111
  Transmission Date: 20070707
  Serious: Yes (Hospitalization, Other)
  Sender: FDA-Public Use
  Company Number: GBWYE704808JUN06

PATIENT
  Age: 28 Year
  Sex: Female

DRUGS (1)
  1. EFFEXOR [Suspect]
     Indication: DEPRESSION
     Dosage: 225 MG 1X PER 1 DAY
     Route: 048
     Dates: start: 20020628

REACTIONS (3)
  - DRUG EXPOSURE DURING PREGNANCY [None]
  - INTRA-UTERINE DEATH [None]
  - PREGNANCY [None]
